FAERS Safety Report 9660788 (Version 2)
Quarter: 2013Q4

REPORT INFORMATION
  Report Type: Report from Study
  Country: JP (occurrence: JP)
  Receive Date: 20131031
  Receipt Date: 20131202
  Transmission Date: 20140711
  Serious: Yes (Death)
  Sender: FDA-Public Use
  Company Number: JP-BAYER-2013-132162

PATIENT
  Age: 89 Year
  Sex: Female

DRUGS (6)
  1. XARELTO [Suspect]
     Indication: CEREBROVASCULAR ACCIDENT PROPHYLAXIS
     Dosage: 10 MG, QD
     Route: 048
     Dates: start: 20121129, end: 20130221
  2. XARELTO [Interacting]
     Indication: THROMBOSIS PROPHYLAXIS
  3. XARELTO [Interacting]
     Indication: ATRIAL FIBRILLATION
  4. BAYASPIRIN [Interacting]
     Dosage: 100 MG, QD
     Route: 048
     Dates: end: 20130221
  5. DIART [Concomitant]
     Dosage: 30 MG, QD
     Route: 048
     Dates: end: 20130221
  6. ASPARTATE POTASSIUM [Concomitant]
     Dosage: 300 MG, QD
     Route: 048
     Dates: end: 20130221

REACTIONS (2)
  - Upper gastrointestinal haemorrhage [Fatal]
  - Drug interaction [None]
